FAERS Safety Report 16607823 (Version 1)
Quarter: 2019Q3

REPORT INFORMATION
  Report Type: Spontaneous
  Country: FR (occurrence: FR)
  Receive Date: 20190722
  Receipt Date: 20190722
  Transmission Date: 20191004
  Serious: Yes (Hospitalization)
  Sender: FDA-Public Use
  Company Number: FR-ACCORD-139223

PATIENT
  Age: 67 Year
  Sex: Female
  Weight: 70 kg

DRUGS (14)
  1. FLUOROURACIL ACCORD [Suspect]
     Active Substance: FLUOROURACIL
     Indication: PANCREATIC CARCINOMA
     Dosage: STRENGTH: 50 MG/ML
     Route: 042
     Dates: start: 20190510, end: 20190510
  2. GLICLAZIDE [Concomitant]
     Active Substance: GLICLAZIDE
  3. OXYCONTIN [Concomitant]
     Active Substance: OXYCODONE HYDROCHLORIDE
     Dosage: STRENGTH: 20 MG, PROLONGED-RELEASE FILM-COATED TABLET
  4. OXYNORMORO [Concomitant]
     Active Substance: OXYCODONE HYDROCHLORIDE
     Dosage: STRENGTH: 5 MG
  5. CREON [Concomitant]
     Active Substance: PANCRELIPASE AMYLASE\PANCRELIPASE LIPASE\PANCRELIPASE PROTEASE
  6. CALCIUM FOLINATE SANDOZ [Suspect]
     Active Substance: LEUCOVORIN CALCIUM
     Indication: PANCREATIC CARCINOMA
     Route: 042
     Dates: start: 20190510, end: 20190510
  7. OXALIPLATIN ACCORD [Suspect]
     Active Substance: OXALIPLATIN
     Indication: PANCREATIC CARCINOMA
     Dosage: STRENGTH: 5 MG/ML
     Route: 042
     Dates: start: 20190510, end: 20190510
  8. IRINOTECAN MEDAC [Suspect]
     Active Substance: IRINOTECAN
     Indication: PANCREATIC CARCINOMA
     Dosage: STRENGTH: 20 MG/ML
     Route: 042
     Dates: start: 20190510, end: 20190510
  9. ABSTRAL [Concomitant]
     Active Substance: FENTANYL CITRATE
     Dosage: STRENGTH: 100 MICROGRAMS
  10. DEBRIDAT [Concomitant]
     Active Substance: TRIMEBUTINE MALEATE
  11. HUMALOG [Concomitant]
     Active Substance: INSULIN LISPRO
  12. ATORVASTATIN [Concomitant]
     Active Substance: ATORVASTATIN
  13. LEVOTHYROX [Concomitant]
     Active Substance: LEVOTHYROXINE
  14. TRESIBA [Concomitant]
     Active Substance: INSULIN DEGLUDEC

REACTIONS (8)
  - Diarrhoea [Recovered/Resolved]
  - Gastroenteritis aerobacter [Recovered/Resolved]
  - Weight decreased [Not Recovered/Not Resolved]
  - Decreased appetite [Not Recovered/Not Resolved]
  - Off label use [Unknown]
  - Nausea [Recovered/Resolved]
  - Vomiting [Recovered/Resolved]
  - Abdominal pain [Recovered/Resolved]

NARRATIVE: CASE EVENT DATE: 201905
